FAERS Safety Report 17532411 (Version 1)
Quarter: 2020Q1

REPORT INFORMATION
  Report Type: Spontaneous
  Country: DE (occurrence: DE)
  Receive Date: 20200312
  Receipt Date: 20200312
  Transmission Date: 20200409
  Serious: Yes (Other)
  Sender: FDA-Public Use
  Company Number: DE-TEVA-2020-DE-1197147

PATIENT
  Age: 15 Year
  Sex: Female

DRUGS (4)
  1. QUETIAPIN-RATIOPHARM 200 MG FILMTABLETTEN [Suspect]
     Active Substance: QUETIAPINE
     Indication: PERSONALITY DISORDER
  2. QUETIAPIN-RATIOPHARM 50 MG FILMTABLETTEN [Suspect]
     Active Substance: QUETIAPINE
     Indication: PERSONALITY DISORDER
  3. QUETIAPIN-RATIOPHARM 200 MG FILMTABLETTEN [Suspect]
     Active Substance: QUETIAPINE
     Indication: DECREASED APPETITE
     Dosage: 400 MILLIGRAM DAILY; 1-0-1
     Route: 048
  4. QUETIAPIN-RATIOPHARM 50 MG FILMTABLETTEN [Suspect]
     Active Substance: QUETIAPINE
     Indication: DECREASED APPETITE
     Dosage: 100 MILLIGRAM DAILY; 1-0-1
     Route: 048

REACTIONS (1)
  - Pericardial effusion [Unknown]
